FAERS Safety Report 5477675-1 (Version None)
Quarter: 2007Q4

REPORT INFORMATION
  Report Type: 
  Country: None (occurrence: None)
  Receive Date: 20071003
  Receipt Date: 20071003
  Transmission Date: 20080405
  Serious: Yes (Hospitalization)
  Sender: FDA-Public Use
  Company Number: None

PATIENT
  Age: 75 Year
  Sex: Male
  Weight: 82.1011 kg

DRUGS (10)
  1. DOCETAXEL 60 MG/M2 IV [Suspect]
     Indication: NEOPLASM MALIGNANT
     Dosage: 120 MG IV Q 3 WEEKS
     Route: 042
  2. OXALIPLATIN 130 MG/M2 [Suspect]
     Indication: NEOPLASM MALIGNANT
     Dosage: 260 MG Q 3 WEEKS
  3. DUCOSATE NA [Concomitant]
  4. HYDROCODONE [Concomitant]
  5. MAALOX [Concomitant]
  6. METRONIDAZOLE [Concomitant]
  7. MILK OF MAGNESIA [Concomitant]
  8. NICOTINE [Concomitant]
  9. OMEPRAZOLE [Concomitant]
  10. ENSURE [Concomitant]

REACTIONS (11)
  - BLOOD PRESSURE DIASTOLIC DECREASED [None]
  - CLOSTRIDIAL INFECTION [None]
  - COUGH [None]
  - DEFORMITY [None]
  - DIARRHOEA [None]
  - FEBRILE NEUTROPENIA [None]
  - FREQUENT BOWEL MOVEMENTS [None]
  - LUNG INFILTRATION [None]
  - OSTEOARTHRITIS [None]
  - PNEUMONIA [None]
  - RESPIRATORY RATE INCREASED [None]
